FAERS Safety Report 7952383-3 (Version None)
Quarter: 2011Q4

REPORT INFORMATION
  Report Type: 
  Country: None (occurrence: None)
  Receive Date: 20111201
  Receipt Date: 20111123
  Transmission Date: 20120403
  Serious: Yes (Other)
  Sender: FDA-Public Use
  Company Number: US-GLAXOSMITHKLINE-A0602808A

PATIENT
  Age: 62 Year
  Sex: Female

DRUGS (24)
  1. QVAR 40 [Concomitant]
  2. ALBUTEROL [Concomitant]
  3. VITAMIN B-12 [Concomitant]
  4. MULTI-VITAMIN [Concomitant]
  5. MUCINEX [Concomitant]
  6. ASCORBIC ACID [Concomitant]
  7. UNKNOWN MEDICATION [Concomitant]
  8. EXCEDRIN (MIGRAINE) [Concomitant]
  9. VITAMIN B COMPLEX 100 [Concomitant]
  10. NASAREL [Concomitant]
  11. CLONAZEPAM [Concomitant]
  12. DIAZEPAM [Concomitant]
  13. PROVIGIL [Concomitant]
  14. MAGNESIUM SUPPLEMENT [Concomitant]
  15. PERCOCET [Concomitant]
  16. LAMICTAL [Suspect]
     Indication: CONVULSION
     Route: 048
     Dates: start: 20000101
  17. CO Q 10 [Concomitant]
  18. ADVAIR DISKUS 100/50 [Suspect]
     Indication: ASTHMA
     Dosage: 1PUFF TWICE PER DAY
     Route: 055
  19. LISINOPRIL [Concomitant]
  20. OXYCODONE HCL AND ACETAMINOPHEN [Concomitant]
  21. POTASSIUM ACETATE [Concomitant]
  22. FISH OIL [Concomitant]
  23. ALBUTEROL INHALER [Concomitant]
  24. ZINC [Concomitant]

REACTIONS (12)
  - HYPOTHYROIDISM [None]
  - PRODUCT QUALITY ISSUE [None]
  - SKIN DISCOLOURATION [None]
  - ASTHMA [None]
  - THERMAL BURN [None]
  - DYSPNOEA [None]
  - BLISTER [None]
  - STEVENS-JOHNSON SYNDROME [None]
  - PRURITUS [None]
  - COUGH [None]
  - CHOKING [None]
  - SKIN EXFOLIATION [None]
